FAERS Safety Report 20190084 (Version 1)
Quarter: 2021Q4

REPORT INFORMATION
  Report Type: Spontaneous
  Country: SA (occurrence: SA)
  Receive Date: 20211215
  Receipt Date: 20211215
  Transmission Date: 20220303
  Serious: Yes (Hospitalization, Other)
  Sender: FDA-Public Use
  Company Number: SA-AMRYT PHARMACEUTICALS DAC-AEGR005335

PATIENT

DRUGS (2)
  1. LOMITAPIDE [Interacting]
     Active Substance: LOMITAPIDE
     Indication: Type IIa hyperlipidaemia
     Dosage: 40 MILLIGRAM
     Route: 048
     Dates: start: 202003
  2. WARFARIN [Interacting]
     Active Substance: WARFARIN
     Indication: Product used for unknown indication
     Dosage: UNK

REACTIONS (2)
  - Labelled drug-drug interaction issue [Recovered/Resolved]
  - Haemorrhage intracranial [Recovered/Resolved]
